FAERS Safety Report 4900618-3 (Version None)
Quarter: 2006Q1

REPORT INFORMATION
  Report Type: 
  Country: None (occurrence: None)
  Receive Date: 20060201
  Receipt Date: 20060117
  Transmission Date: 20060701
  Serious: Yes (Hospitalization, Other)
  Sender: FDA-Public Use
  Company Number: USA0511112712

PATIENT
  Age: 87 Year
  Sex: Male

DRUGS (12)
  1. FORTEO [Suspect]
     Indication: OSTEOPOROSIS
     Dates: start: 20051101, end: 20060117
  2. IMDUR [Concomitant]
  3. CORDARONE [Concomitant]
  4. FLOMAX [Concomitant]
  5. PROSCAR [Concomitant]
  6. CELEBREX [Concomitant]
  7. LASIX (FUROSEMDIE) [Concomitant]
  8. CALCIUM (CALCIUM) [Concomitant]
  9. TYLENOL (CAPLET) [Concomitant]
  10. MULTI-VITAMIN [Concomitant]
  11. CLONAZEPAM [Concomitant]
  12. FORTEO PEN, 250MCG/ML(3ML) (FORTEO PEN 20MCG/ML (3ML)) PEN, DISPOSABLE [Concomitant]

REACTIONS (14)
  - ATRIAL FIBRILLATION [None]
  - BACK PAIN [None]
  - CHEST PAIN [None]
  - DEVICE FAILURE [None]
  - DIZZINESS [None]
  - EXTRASYSTOLES [None]
  - HYPERTENSION [None]
  - MYOCARDIAL INFARCTION [None]
  - NECK PAIN [None]
  - PAIN IN EXTREMITY [None]
  - PHARMACEUTICAL PRODUCT COMPLAINT [None]
  - SHOULDER PAIN [None]
  - UNDERDOSE [None]
  - VENTRICULAR EXTRASYSTOLES [None]
